FAERS Safety Report 4919326-8 (Version None)
Quarter: 2006Q1

REPORT INFORMATION
  Report Type: 
  Country: None (occurrence: None)
  Receive Date: 20060216
  Receipt Date: 20060203
  Transmission Date: 20060701
  Serious: Yes (Other)
  Sender: FDA-Public Use
  Company Number: 2006017422

PATIENT
  Age: 73 Year
  Sex: Male
  Weight: 72.5755 kg

DRUGS (9)
  1. DETROL LA [Suspect]
     Indication: HYPERTONIC BLADDER
     Dosage: UNKNOWN (1 IN 1 D), ORAL
     Route: 048
     Dates: start: 20051123
  2. DIURETICS (DIURETICS) [Suspect]
     Indication: CARDIAC DISORDER
     Dates: start: 20051212
  3. ADVAIR DISKUS 100/50 [Suspect]
     Indication: CHRONIC OBSTRUCTIVE PULMONARY DISEASE
     Dates: start: 20050101
  4. COMBIVENT [Concomitant]
  5. GLUCOTROL XL [Concomitant]
  6. AVANDIA [Concomitant]
  7. PRANDIN [Concomitant]
  8. ALTACE [Concomitant]
  9. ALL OTHER THRAPEUTIC PRODUCTS (ALL OTHER THERAPEUTIC PRODUCTS) [Concomitant]

REACTIONS (6)
  - CARDIAC DISORDER [None]
  - DRUG INTERACTION [None]
  - DRY MOUTH [None]
  - MICTURITION URGENCY [None]
  - ORAL FUNGAL INFECTION [None]
  - POLLAKIURIA [None]
